FAERS Safety Report 8998531 (Version 1)
Quarter: 2013Q1

REPORT INFORMATION
  Report Type: Spontaneous
  Country: US (occurrence: US)
  Receive Date: 20130103
  Receipt Date: 20130103
  Transmission Date: 20140127
  Serious: No
  Sender: FDA-Public Use
  Company Number: US-ASTRAZENECA-2012SE95363

PATIENT
  Age: 59 Year
  Sex: Female
  Weight: 53.5 kg

DRUGS (5)
  1. ENTOCORT EC [Suspect]
     Indication: COLITIS ULCERATIVE
     Route: 048
     Dates: start: 201209
  2. ENTOCORT EC [Suspect]
     Indication: COLITIS MICROSCOPIC
     Route: 048
     Dates: start: 201209
  3. RESTORIL [Concomitant]
     Indication: SLEEP DISORDER
     Route: 048
  4. PROZAC [Concomitant]
     Indication: DEPRESSION
     Dosage: FOR 15 YEARS
     Route: 048
  5. BUSPIRONE [Concomitant]
     Indication: ANXIETY
     Route: 048

REACTIONS (3)
  - Body height decreased [Unknown]
  - Osteoporosis [Unknown]
  - Off label use [Unknown]
